FAERS Safety Report 14382419 (Version 12)
Quarter: 2019Q4

REPORT INFORMATION
  Report Type: Spontaneous
  Country: PL (occurrence: PL)
  Receive Date: 20180112
  Receipt Date: 20191115
  Transmission Date: 20200122
  Serious: Yes (Other)
  Sender: FDA-Public Use
  Company Number: PL-MYLANLABS-2018M1003406

PATIENT
  Age: 70 Year
  Sex: Female

DRUGS (20)
  1. AMITRIPTYLINE [Interacting]
     Active Substance: AMITRIPTYLINE
     Indication: DEPRESSION
     Dosage: 25 MG, QD
  2. BIPERIDEN [Interacting]
     Active Substance: BIPERIDEN
     Dosage: 2 MILLIGRAM, BID, 2 MG, 2X/DAY (BID)
  3. AMITRIPTYLINE [Interacting]
     Active Substance: AMITRIPTYLINE
     Indication: SLEEP DISORDER
     Dosage: UNK
  4. OXYBUTYNIN. [Interacting]
     Active Substance: OXYBUTYNIN CHLORIDE
     Indication: URINARY INCONTINENCE
     Dosage: 15 MG, QD, 5 MG, 3X/DAY (TID)
  5. ROPINIROLE. [Interacting]
     Active Substance: ROPINIROLE
     Dosage: 6 MG, QD
     Route: 048
  6. AMANTADINE. [Interacting]
     Active Substance: AMANTADINE HYDROCHLORIDE
     Indication: PARKINSON^S DISEASE
     Dosage: 200 MILLIGRAM, BID, 100 MG TWICE DAILY (AT MORNING AND AT NOON)
  7. AMANTADINE. [Interacting]
     Active Substance: AMANTADINE HYDROCHLORIDE
     Dosage: 100 MILLIGRAM, QD
  8. AMOXICILLIN. [Concomitant]
     Active Substance: AMOXICILLIN
     Indication: PNEUMONIA
     Dosage: UNK
  9. RIVASTIGMINE. [Interacting]
     Active Substance: RIVASTIGMINE
     Indication: PRODUCT USED FOR UNKNOWN INDICATION
     Dosage: UNK
  10. OXYBUTYNIN. [Interacting]
     Active Substance: OXYBUTYNIN CHLORIDE
     Dosage: 5 MILLIGRAM, QD
  11. ROPINIROLE. [Interacting]
     Active Substance: ROPINIROLE
     Dosage: 2 MILLIGRAM, QD
     Route: 048
  12. HYDROXYZINE [Suspect]
     Active Substance: HYDROXYZINE HYDROCHLORIDE
     Indication: ANXIETY DISORDER
     Dosage: 25 MILLIGRAM, QD, 25 MG AD HOC ADMINISTERED DUE TO ANXIETY DISORDERS
  13. CARBIDOPA/LEVODOPA [Suspect]
     Active Substance: CARBIDOPA\LEVODOPA
     Indication: PARKINSON^S DISEASE
     Dosage: LEVODOPA 100/CARBIDOPA 25 MG, QID ((AT 7.00, 11.00, 15.00, 19.00)
  14. ROPINIROLE. [Interacting]
     Active Substance: ROPINIROLE
     Indication: PARKINSON^S DISEASE
     Dosage: 8 MG, QD, 8 MG ONES DAILY (AT THE MORNING), THEN THE DOSE REDUCED BY 2 MG
     Route: 048
  15. CARBIDOPA/LEVODOPA [Suspect]
     Active Substance: CARBIDOPA\LEVODOPA
     Dosage: LEVODOPA 200/CARBIDOPA 50 MG 4 TIMES A DAY AT 7.00 AM, 11.00 AM, 3.00 PM, 7.00 PM
  16. CARBIDOPA/LEVODOPA [Suspect]
     Active Substance: CARBIDOPA\LEVODOPA
     Dosage: LEVODOPA 200/CARBIDOPA 50 MG A DAY (AT 10.00 PM
  17. RASAGILINE MESILATE [Interacting]
     Active Substance: RASAGILINE MESYLATE
     Indication: PARKINSON^S DISEASE
     Dosage: 1 MG, QD, 1 MG AT THE MORNING
  18. ROPINIROLE. [Interacting]
     Active Substance: ROPINIROLE
     Dosage: UNK, DOSE REDUCED BY 2 MG
  19. BIPERIDEN [Interacting]
     Active Substance: BIPERIDEN
     Indication: PARKINSON^S DISEASE
     Dosage: 4 MG, QD
  20. CLOZAPINE. [Suspect]
     Active Substance: CLOZAPINE
     Indication: HALLUCINATIONS, MIXED
     Dosage: UNK

REACTIONS (16)
  - Mental impairment [Unknown]
  - Cerebral atrophy [Unknown]
  - Psychotic symptom [Unknown]
  - Bradykinesia [Unknown]
  - Parkinson^s disease [Unknown]
  - Resting tremor [Unknown]
  - Neutrophil count increased [Unknown]
  - C-reactive protein increased [Unknown]
  - Musculoskeletal stiffness [Unknown]
  - Pneumonia [Unknown]
  - On and off phenomenon [Unknown]
  - Anxiety [Unknown]
  - Labelled drug-drug interaction medication error [Unknown]
  - Dementia [Unknown]
  - Leukocytosis [Unknown]
  - Hallucinations, mixed [Recovered/Resolved]
